FAERS Safety Report 8978027 (Version 8)
Quarter: 2014Q4

REPORT INFORMATION
  Report Type: Spontaneous
  Country: FR (occurrence: FR)
  Receive Date: 20121220
  Receipt Date: 20141014
  Transmission Date: 20150529
  Serious: Yes (Life-Threatening, Hospitalization, Disabling)
  Sender: FDA-Public Use
  Company Number: FR-ASTRAZENECA-2012SE93778

PATIENT
  Age: 7521 Day
  Sex: Male

DRUGS (46)
  1. TERCIAN [Suspect]
     Active Substance: CYAMEMAZINE
     Indication: SCHIZOPHRENIA
     Dates: start: 20121013, end: 20121013
  2. SUBUTEX [Suspect]
     Active Substance: BUPRENORPHINE HYDROCHLORIDE
     Indication: DRUG DEPENDENCE
     Route: 060
     Dates: start: 20121024, end: 20121104
  3. LEPTICUR [Suspect]
     Active Substance: TROPATEPINE HYDROCHLORIDE
     Indication: PARKINSONISM
     Route: 048
     Dates: start: 20120723
  4. ATARX [Concomitant]
     Dosage: 100, 1 DF DAILY
     Route: 048
  5. IMOVANE [Concomitant]
     Active Substance: ZOPICLONE
     Route: 048
  6. XEROQUEL [Suspect]
     Active Substance: QUETIAPINE FUMARATE
     Indication: SCHIZOPHRENIA
     Route: 048
     Dates: start: 20121026
  7. LEPTICUR [Suspect]
     Active Substance: TROPATEPINE HYDROCHLORIDE
     Indication: PARKINSONISM
     Route: 048
     Dates: start: 20121106, end: 20121111
  8. RISPERDAL [Suspect]
     Active Substance: RISPERIDONE
     Route: 048
     Dates: start: 20120907
  9. RISPERDAL [Suspect]
     Active Substance: RISPERIDONE
     Dosage: SUSPICION OF ONE INJECTION IN THE MORNING
     Dates: start: 20121013, end: 20121016
  10. VALIUM [Concomitant]
     Active Substance: DIAZEPAM
     Indication: ANXIETY
     Dosage: 2 TABLETS IN THE MORNING, ONE TABLET IN THE AFTERNOON AND ONE TABLET IN THE EVENING
     Dates: start: 20121018, end: 20121024
  11. HAVLANE [Concomitant]
     Active Substance: LOPRAZOLAM
     Indication: INSOMNIA
     Route: 048
     Dates: start: 20121018, end: 20121111
  12. DOLIPRANE [Concomitant]
     Active Substance: ACETAMINOPHEN
     Dates: start: 20121010
  13. TERCIAN [Suspect]
     Active Substance: CYAMEMAZINE
     Indication: SCHIZOPHRENIA
  14. TERCIAN [Suspect]
     Active Substance: CYAMEMAZINE
     Indication: SCHIZOPHRENIA
     Dates: start: 20121105, end: 20121106
  15. SUBUTEX [Suspect]
     Active Substance: BUPRENORPHINE HYDROCHLORIDE
     Indication: DRUG DEPENDENCE
     Route: 060
     Dates: start: 20121108, end: 20121111
  16. THERALENE [Suspect]
     Active Substance: TRIMEPRAZINE
     Indication: INSOMNIA
     Route: 048
     Dates: start: 20120727, end: 20121112
  17. NOZINAN [Concomitant]
     Active Substance: LEVOMEPROMAZINE
     Dates: start: 20121011
  18. NOREPINEPHRINE [Concomitant]
     Active Substance: NOREPINEPHRINE\NOREPINEPHRINE BITARTRATE
  19. TERCIAN [Suspect]
     Active Substance: CYAMEMAZINE
     Indication: SCHIZOPHRENIA
     Dosage: 1 TABLET IN THE AFTERNOON
     Dates: start: 20121010
  20. TERCIAN [Suspect]
     Active Substance: CYAMEMAZINE
     Indication: SCHIZOPHRENIA
     Dosage: 2 TABLETS IN THE MORNING AND ONE TABLET IN THE AFTERNOON
     Dates: start: 20121011, end: 20121012
  21. RISPERDAL [Suspect]
     Active Substance: RISPERIDONE
     Dosage: RISPERDAL CONSTA LP 50 MG/2ML, ONE INJECTION IN THE MORNING
     Dates: start: 20121012
  22. RISPERDAL [Suspect]
     Active Substance: RISPERIDONE
     Dosage: ONE INJECTION IN THE MORNING
     Dates: start: 20121026
  23. VALIUM [Concomitant]
     Active Substance: DIAZEPAM
     Indication: ANXIETY
     Route: 048
     Dates: start: 20120907
  24. SPASFON [Concomitant]
     Active Substance: PHLOROGLUCINOL
     Dates: start: 20121010
  25. LEXOMIL [Concomitant]
     Active Substance: BROMAZEPAM
     Dosage: 1 TABLET IN THE AFTERNOON
     Dates: start: 20121018
  26. TAZOCILLINE [Concomitant]
     Active Substance: PIPERACILLIN SODIUM\TAZOBACTAM SODIUM
  27. TERCIAN [Suspect]
     Active Substance: CYAMEMAZINE
     Indication: SCHIZOPHRENIA
     Dates: start: 20121107, end: 20121107
  28. CELOCURINE [Concomitant]
     Active Substance: SUCCINYLCHOLINE CHLORIDE
     Indication: SEDATION
     Dates: start: 20121111
  29. TERCIAN [Suspect]
     Active Substance: CYAMEMAZINE
     Indication: SCHIZOPHRENIA
     Dosage: 1 TABLET IN THE MORNING AND 1 TABLET IN THE AFTERNOON
     Dates: start: 20121105, end: 20121105
  30. TERCIAN [Suspect]
     Active Substance: CYAMEMAZINE
     Indication: SCHIZOPHRENIA
     Dosage: 2 TABLETS IN THE MORNING AND 1 TABLET IN THE AFTERNOON
     Dates: start: 20121107, end: 20121111
  31. VALIUM [Concomitant]
     Active Substance: DIAZEPAM
     Indication: ANXIETY
     Dosage: 1 TABLET IN THE AFTERNOON
     Dates: start: 20121010
  32. VALIUM [Concomitant]
     Active Substance: DIAZEPAM
     Indication: ANXIETY
     Dosage: 1 TABLET IN THE MORNING AND 1 TABLET IN THE EVENING
     Dates: start: 20121107, end: 20121111
  33. NOZINAN [Concomitant]
     Active Substance: LEVOMEPROMAZINE
     Dates: start: 201211, end: 20121207
  34. ZYPREXA [Concomitant]
     Active Substance: OLANZAPINE
     Dates: start: 20120723
  35. ETOMIDATE. [Concomitant]
     Active Substance: ETOMIDATE
     Indication: SEDATION
     Dates: start: 20121111
  36. XEROQUEL [Suspect]
     Active Substance: QUETIAPINE FUMARATE
     Indication: SCHIZOPHRENIA
     Route: 048
     Dates: start: 20121107, end: 20121112
  37. TERCIAN [Suspect]
     Active Substance: CYAMEMAZINE
     Indication: SCHIZOPHRENIA
     Dosage: 100 DROPS IN THE AFTERNOON
     Dates: start: 20121013, end: 20121014
  38. TERCIAN [Suspect]
     Active Substance: CYAMEMAZINE
     Indication: SCHIZOPHRENIA
     Dosage: 2 TABLETS IN THE MORNING AND ONE TABLET IN THE AFTERNOON FROM
     Dates: start: 20121014, end: 20121104
  39. SUBUTEX [Suspect]
     Active Substance: BUPRENORPHINE HYDROCHLORIDE
     Indication: DRUG DEPENDENCE
     Route: 060
     Dates: start: 20121017, end: 20121023
  40. VALIUM [Concomitant]
     Active Substance: DIAZEPAM
     Indication: ANXIETY
     Dosage: 2 TABLETS IN THE MORNING AND 2 TABLETS IN THE AFTERNOON
     Dates: start: 20121011, end: 20121017
  41. DAFALGAN [Concomitant]
     Active Substance: ACETAMINOPHEN
     Dates: start: 20121010, end: 20121010
  42. DAFALGAN [Concomitant]
     Active Substance: ACETAMINOPHEN
     Dosage: 4 CAPSULES IN THE MORNING AND 2 CAPSULES IN THE AFTERNOON
     Dates: start: 20121011, end: 20121110
  43. TERCIAN [Suspect]
     Active Substance: CYAMEMAZINE
     Indication: SCHIZOPHRENIA
     Dosage: 1 TABLET IN THE AFTERNOON
     Dates: start: 20121106, end: 20121106
  44. THERALENE [Suspect]
     Active Substance: TRIMEPRAZINE
     Indication: INSOMNIA
     Route: 048
     Dates: start: 20120907
  45. THERALENE [Suspect]
     Active Substance: TRIMEPRAZINE
     Indication: INSOMNIA
     Dates: start: 20121010, end: 20121111
  46. VALIUM [Concomitant]
     Active Substance: DIAZEPAM
     Indication: ANXIETY
     Dosage: 2 TABLETS IN THE MORNING AND ONE TABLET IN THE EVENING
     Dates: start: 20121025, end: 20121106

REACTIONS (3)
  - Colitis ischaemic [Recovered/Resolved with Sequelae]
  - Gastrointestinal necrosis [Recovered/Resolved with Sequelae]
  - Large intestinal obstruction [Recovered/Resolved with Sequelae]

NARRATIVE: CASE EVENT DATE: 20121111
